FAERS Safety Report 11826052 (Version 1)
Quarter: 2015Q4

REPORT INFORMATION
  Report Type: Spontaneous
  Country: US (occurrence: None)
  Receive Date: 20151210
  Receipt Date: 20151210
  Transmission Date: 20160305
  Serious: No
  Sender: FDA-Public Use
  Company Number: None

PATIENT
  Age: 77 Year
  Sex: Male

DRUGS (9)
  1. CALCIUM [Concomitant]
     Active Substance: CALCIUM
  2. LISINOPRIL. [Concomitant]
     Active Substance: LISINOPRIL
  3. AMITRIPTYLIN [Concomitant]
     Active Substance: AMITRIPTYLINE
  4. ELIGARD [Concomitant]
     Active Substance: LEUPROLIDE ACETATE
  5. ZOMETA [Concomitant]
     Active Substance: ZOLEDRONIC ACID
  6. PREDNISONE. [Concomitant]
     Active Substance: PREDNISONE
  7. VITAMIN D [Concomitant]
     Active Substance: CHOLECALCIFEROL
  8. CENTRUM [Concomitant]
     Active Substance: VITAMINS
  9. ZYTIGA [Suspect]
     Active Substance: ABIRATERONE ACETATE
     Indication: NEOPLASM MALIGNANT
     Route: 048
     Dates: start: 20151118, end: 20151208

REACTIONS (1)
  - Drug effect decreased [None]

NARRATIVE: CASE EVENT DATE: 20151208
